FAERS Safety Report 5103502-8 (Version None)
Quarter: 2006Q3

REPORT INFORMATION
  Report Type: 
  Country: None (occurrence: None)
  Receive Date: 20060731
  Receipt Date: 20051221
  Transmission Date: 20061208
  Serious: Yes (Death)
  Sender: FDA-Public Use
  Company Number: US-JNJFOC-20051200305

PATIENT
  Age: 77 Year
  Sex: Male
  Weight: 62.5964 kg

DRUGS (1)
  1. RISPERDAL [Suspect]
     Indication: SCHIZOPHRENIA
     Dosage: , 1 IN 2 WEEK, INTRA-MUSCULAR
     Route: 030

REACTIONS (1)
  - SUDDEN CARDIAC DEATH [None]
